FAERS Safety Report 8924043 (Version 2)
Quarter: 2013Q3

REPORT INFORMATION
  Report Type: Spontaneous
  Country: JP (occurrence: JP)
  Receive Date: 20121127
  Receipt Date: 20130830
  Transmission Date: 20140515
  Serious: Yes (Death, Hospitalization)
  Sender: FDA-Public Use
  Company Number: JP-AMGEN-JPNSP2012075098

PATIENT
  Age: 86 Year
  Sex: Male

DRUGS (20)
  1. VECTIBIX [Suspect]
     Indication: COLON CANCER
     Dosage: 340 MG, UNK
     Route: 041
     Dates: start: 20110221, end: 20110221
  2. VECTIBIX [Suspect]
     Dosage: 340 MG, UNK
     Route: 041
     Dates: start: 20110314, end: 20110314
  3. VECTIBIX [Suspect]
     Dosage: 340 MG, UNK
     Route: 041
     Dates: start: 20110328, end: 20110328
  4. VECTIBIX [Suspect]
     Dosage: 340 MG, UNK
     Route: 041
     Dates: start: 20110425, end: 20110425
  5. VECTIBIX [Suspect]
     Dosage: 340 MG, UNK
     Route: 041
     Dates: start: 20110523, end: 20110523
  6. VECTIBIX [Suspect]
     Dosage: 340 MG, UNK
     Route: 041
     Dates: start: 20110620, end: 20110620
  7. VECTIBIX [Suspect]
     Dosage: 340 MG, UNK
     Route: 041
     Dates: start: 20110704, end: 20110704
  8. VECTIBIX [Suspect]
     Dosage: 340 MG, UNK
     Route: 041
     Dates: start: 20110801, end: 20110801
  9. VECTIBIX [Suspect]
     Dosage: 340 MG, UNK
     Route: 041
     Dates: start: 20110829, end: 20110829
  10. VECTIBIX [Suspect]
     Dosage: 300 MG, UNK
     Route: 041
     Dates: start: 20111004, end: 20111004
  11. VECTIBIX [Suspect]
     Dosage: 340 MG, UNK
     Route: 041
     Dates: start: 20111107, end: 20111107
  12. VECTIBIX [Suspect]
     Dosage: 340 MG, UNK
     Route: 041
     Dates: start: 20111205, end: 20111205
  13. VECTIBIX [Suspect]
     Dosage: 340 MG, UNK
     Route: 041
     Dates: start: 20120110, end: 20120110
  14. ELPLAT [Suspect]
     Indication: COLON CANCER
     Dosage: 130 MG, Q2WK
     Route: 041
     Dates: start: 20110221, end: 20110425
  15. 5 FU [Concomitant]
     Indication: COLON CANCER
     Dosage: 465 MG, Q2WK
     Route: 040
     Dates: start: 20110221, end: 20120110
  16. 5 FU [Concomitant]
     Dosage: 3100 MG, Q2WK
     Route: 041
     Dates: start: 20110221, end: 20120110
  17. LEVOFOLINATE [Concomitant]
     Indication: COLON CANCER
     Dosage: 300 MG, Q2WK
     Route: 041
     Dates: start: 20110221, end: 20120110
  18. TOPOTECIN [Concomitant]
     Indication: COLON CANCER
     Dosage: 230 MG, Q2WK
     Route: 041
     Dates: start: 20110523, end: 20120110
  19. DECADRON [Concomitant]
     Indication: COLON CANCER
     Dosage: 6.6 MG, Q2WK
     Route: 041
     Dates: start: 20110221, end: 20120110
  20. ALOXI [Concomitant]
     Indication: COLON CANCER
     Dosage: 0.75 MG, Q2WK
     Route: 041
     Dates: start: 20110221, end: 20120110

REACTIONS (3)
  - Neuropathy peripheral [Recovering/Resolving]
  - Colon cancer [Fatal]
  - Metastases to liver [Fatal]
